FAERS Safety Report 22315232 (Version 1)
Quarter: 2023Q2

REPORT INFORMATION
  Report Type: Spontaneous
  Country: GB (occurrence: GB)
  Receive Date: 20230512
  Receipt Date: 20230512
  Transmission Date: 20230721
  Serious: Yes (Other)
  Sender: FDA-Public Use
  Company Number: None

PATIENT
  Age: 8 Year
  Weight: 35.4 kg

DRUGS (2)
  1. METHYLPHENIDATE [Suspect]
     Active Substance: METHYLPHENIDATE
     Indication: Attention deficit hyperactivity disorder
     Dosage: 7.5 MILLIGRAM, TID
     Route: 048
     Dates: start: 20230216, end: 20230314
  2. METHYLPHENIDATE [Suspect]
     Active Substance: METHYLPHENIDATE
     Dosage: 10 MILLIGRAM, TID
     Route: 048
     Dates: start: 20230216, end: 20230314

REACTIONS (7)
  - Emotional disorder [Unknown]
  - Eye movement disorder [Unknown]
  - Brain fog [Unknown]
  - Hyperventilation [Unknown]
  - Speech disorder [Unknown]
  - Soliloquy [Unknown]
  - Depression [Unknown]
